FAERS Safety Report 23394254 (Version 1)
Quarter: 2024Q1

REPORT INFORMATION
  Report Type: Spontaneous
  Country: US (occurrence: US)
  Receive Date: 20240111
  Receipt Date: 20240111
  Transmission Date: 20240409
  Serious: Yes (Hospitalization, Other)
  Sender: FDA-Public Use
  Company Number: US-FOUNDATIONCONSUMERHC-2023-US-044740

PATIENT
  Age: 61 Year
  Sex: Female
  Weight: 56.25 kg

DRUGS (4)
  1. ST. JOSEPH LOW DOSE ASPIRIN [Suspect]
     Active Substance: ASPIRIN
     Indication: Cerebrovascular accident
     Dosage: 1 CAPSULE
     Route: 048
     Dates: start: 202311, end: 20231209
  2. ATORVASTATIN [Concomitant]
     Active Substance: ATORVASTATIN
  3. CLONAZEPAM [Concomitant]
     Active Substance: CLONAZEPAM
  4. PROTONIX [Concomitant]
     Active Substance: PANTOPRAZOLE SODIUM

REACTIONS (3)
  - Gastric haemorrhage [Recovered/Resolved]
  - Haemoglobin decreased [Not Recovered/Not Resolved]
  - Off label use [Recovered/Resolved]

NARRATIVE: CASE EVENT DATE: 20231101
